FAERS Safety Report 14171085 (Version 3)
Quarter: 2018Q4

REPORT INFORMATION
  Report Type: Spontaneous
  Country: JP (occurrence: JP)
  Receive Date: 20171108
  Receipt Date: 20181115
  Transmission Date: 20190204
  Serious: Yes (Hospitalization)
  Sender: FDA-Public Use
  Company Number: JP-ELI_LILLY_AND_COMPANY-JP201709002304

PATIENT
  Age: 61 Year
  Sex: Female

DRUGS (2)
  1. CYRAMZA [Suspect]
     Active Substance: RAMUCIRUMAB
     Indication: NON-SMALL CELL LUNG CANCER STAGE IV
     Dosage: 10 MG/KG, OTHER
     Route: 041
     Dates: start: 201703
  2. DOCETAXEL. [Concomitant]
     Active Substance: DOCETAXEL
     Indication: NON-SMALL CELL LUNG CANCER STAGE IV
     Dosage: 50 MG/M2, OTHER
     Route: 041
     Dates: start: 201703

REACTIONS (1)
  - Haemangioma [Recovered/Resolved]

NARRATIVE: CASE EVENT DATE: 201709
